FAERS Safety Report 5825924-X (Version None)
Quarter: 2008Q3

REPORT INFORMATION
  Report Type: 
  Country: None (occurrence: None)
  Receive Date: 20080729
  Receipt Date: 20080721
  Transmission Date: 20090109
  Serious: Yes (Hospitalization)
  Sender: FDA-Public Use
  Company Number: PHHY2008DE14984

PATIENT
  Sex: Female

DRUGS (3)
  1. CORDINATE [Suspect]
     Indication: HYPERTENSION
     Dosage: 320 MG, QD
     Route: 048
     Dates: start: 20071129, end: 20080105
  2. METO-TABLINEN [Concomitant]
  3. ASPIRIN [Concomitant]
     Dosage: 100 MG, UNK

REACTIONS (2)
  - HYPOTONIA [None]
  - SYNCOPE [None]
